FAERS Safety Report 8214612-0 (Version None)
Quarter: 2012Q1

REPORT INFORMATION
  Report Type: 
  Country: None (occurrence: None)
  Receive Date: 20120228
  Receipt Date: 20110214
  Transmission Date: 20120608
  Serious: Yes (Hospitalization)
  Sender: FDA-Public Use
  Company Number: RB-22360-2011

PATIENT
  Age: 19 Month

DRUGS (1)
  1. SUBOXONE [Suspect]
     Indication: PRODUCT USED FOR UNKNOWN INDICATION
     Dosage: (DOSING DETAILS UNKNOWN UNKNOWN)
     Dates: start: 20101112, end: 20101112

REACTIONS (2)
  - RESPIRATORY DEPRESSION [None]
  - ACCIDENTAL EXPOSURE [None]
